FAERS Safety Report 4816179-3 (Version None)
Quarter: 2005Q4

REPORT INFORMATION
  Report Type: 
  Country: None (occurrence: None)
  Receive Date: 20051027
  Receipt Date: 20050930
  Transmission Date: 20060501
  Serious: Yes (Death, Other)
  Sender: FDA-Public Use
  Company Number: 2005-DE-04054GD

PATIENT
  Age: 58 Year
  Sex: Male

DRUGS (12)
  1. MORPHINE [Suspect]
     Indication: NEURALGIA
     Dosage: SEE IMAGE
     Route: 042
  2. CLONIDINE [Suspect]
     Indication: NEURALGIA
     Dosage: 57.6 - 450 MCG, IT
     Route: 037
  3. BUPIVACAINE [Suspect]
     Indication: NEURALGIA
     Dosage: 30 - 180 MG, IT
     Route: 037
  4. MEFENAMIC ACID [Suspect]
     Indication: NEURALGIA
     Dosage: SEE IMAGE
     Route: 048
  5. CARBAMAZEPINE [Suspect]
     Indication: NEURALGIA
     Dosage: 200 - 1400 MG, PO
     Route: 048
  6. AMITRIPTYLINE HCL [Suspect]
     Indication: NEURALGIA
     Dosage: 25 - 75 MG, PO
     Route: 048
  7. FENTANYL [Suspect]
     Indication: NEURALGIA
     Dosage: 200 MCG/H, TD
  8. KETAMINE (KETAMINE) [Suspect]
     Indication: NEURALGIA
     Dosage: 7.5 - 50 MG, IT
     Route: 037
  9. CITALOPRAM HYDROBROMIDE [Concomitant]
  10. DEXAMETHASONE (DEXAMETHASONE) (DEXAMETHASONE) [Concomitant]
  11. GABAPENTINE (GABAPENTIN) [Concomitant]
  12. OMEPRAZOLE [Concomitant]

REACTIONS (7)
  - CONDITION AGGRAVATED [None]
  - INADEQUATE ANALGESIA [None]
  - METASTASES TO BONE [None]
  - METASTASES TO MUSCLE [None]
  - NEURALGIA [None]
  - PATHOLOGICAL FRACTURE [None]
  - PROCEDURAL PAIN [None]
